FAERS Safety Report 8220743-1 (Version None)
Quarter: 2012Q1

REPORT INFORMATION
  Report Type: 
  Country: None (occurrence: None)
  Receive Date: 20120320
  Receipt Date: 20120312
  Transmission Date: 20120608
  Serious: Yes (Hospitalization, Other)
  Sender: FDA-Public Use
  Company Number: FR-UCBSA-053344

PATIENT
  Age: 68 Year
  Sex: Female

DRUGS (7)
  1. ENTOCORT EC [Suspect]
     Route: 048
     Dates: start: 20110121
  2. DEPAKENE [Suspect]
     Indication: EPILEPSY
     Dosage: TOTAL DAILY DOSE: 2500 MG
     Route: 048
     Dates: start: 20110107
  3. PENTASA [Concomitant]
     Dosage: 500 MG, 2G DAILY FOR A LONG TIME
     Route: 048
  4. KEPPRA [Suspect]
     Indication: EPILEPSY
     Dosage: TOTAL DAILY DOSE: 1250 MG
     Route: 048
     Dates: start: 20110107
  5. POTASSIUM CHLORIDE [Concomitant]
     Dosage: 3 CAPSULE DAILY FOR A LONG TIME
     Route: 048
  6. PREVISCAN [Concomitant]
     Dosage: 20 MG, 10 MG DAILY FOR A LONG TIME
     Route: 048
  7. HYDROCORTISONE [Concomitant]
     Dosage: 10 MG FOR A LONG TIME
     Route: 048

REACTIONS (2)
  - STATUS EPILEPTICUS [None]
  - THROMBOCYTOPENIA [None]
